FAERS Safety Report 13737522 (Version 1)
Quarter: 2017Q3

REPORT INFORMATION
  Report Type: Spontaneous
  Country: JO (occurrence: JO)
  Receive Date: 20170710
  Receipt Date: 20170710
  Transmission Date: 20171127
  Serious: Yes (Death, Other)
  Sender: FDA-Public Use
  Company Number: JO-AMGEN-JORSP2017103268

PATIENT
  Age: 16 Year
  Sex: Female

DRUGS (4)
  1. ONE ALPHA [Concomitant]
     Active Substance: ALFACALCIDOL
     Indication: BONE DISORDER
     Dosage: 1 MUG, QD
  2. HYPOTEN [Concomitant]
     Indication: HYPERTENSION
     Dosage: 50 MG, BID
  3. ARANESP [Suspect]
     Active Substance: DARBEPOETIN ALFA
     Indication: HAEMODIALYSIS
     Dosage: 30 MUG, QWK
     Route: 058
  4. LASIX [Concomitant]
     Active Substance: FUROSEMIDE
     Indication: PULMONARY OEDEMA
     Dosage: 40 MG, QID

REACTIONS (3)
  - Paralysis [Unknown]
  - Fatigue [Unknown]
  - Death [Fatal]

NARRATIVE: CASE EVENT DATE: 20170621
